FAERS Safety Report 8973867 (Version 1)
Quarter: 2012Q4

REPORT INFORMATION
  Report Type: 
  Country: US (occurrence: US)
  Receive Date: 20121218
  Receipt Date: 20121218
  Transmission Date: 20130627
  Serious: No
  Sender: FDA-Public Use
  Company Number: US-BRISTOL-MYERS SQUIBB COMPANY-16415721

PATIENT
  Age: 12 Year
  Sex: Female
  Weight: 66 kg

DRUGS (3)
  1. ABILIFY TABS 10 MG [Suspect]
     Indication: DEPRESSION
     Dates: start: 20120107
  2. CONCERTA [Concomitant]
     Indication: DEPRESSION
     Dates: end: 20120103
  3. GUANFACINE [Concomitant]
     Dosage: Intuniv

REACTIONS (2)
  - Muscle spasms [Recovered/Resolved]
  - Tremor [Unknown]
